FAERS Safety Report 19862101 (Version 11)
Quarter: 2022Q3

REPORT INFORMATION
  Report Type: Report from Study
  Country: US (occurrence: US)
  Receive Date: 20210921
  Receipt Date: 20220719
  Transmission Date: 20221027
  Serious: Yes (Hospitalization)
  Sender: FDA-Public Use
  Company Number: US-NOVARTISTESTPH-NVSC2021US213540

PATIENT
  Sex: Female

DRUGS (2)
  1. ENTRESTO [Suspect]
     Active Substance: SACUBITRIL\VALSARTAN
     Indication: Product used for unknown indication
     Dosage: UNK UNK, BID
     Route: 048
     Dates: start: 2020
  2. METOPROLOL [Suspect]
     Active Substance: METOPROLOL
     Indication: Product used for unknown indication
     Dosage: UNK
     Route: 065
     Dates: start: 2016

REACTIONS (18)
  - Charles Bonnet syndrome [Unknown]
  - Hallucination [Unknown]
  - Peripheral swelling [Recovered/Resolved]
  - Memory impairment [Not Recovered/Not Resolved]
  - Balance disorder [Not Recovered/Not Resolved]
  - Visual impairment [Unknown]
  - Decreased activity [Unknown]
  - Heart rate increased [Unknown]
  - Stress [Unknown]
  - Confusional state [Unknown]
  - Condition aggravated [Unknown]
  - Illness [Unknown]
  - Weight decreased [Not Recovered/Not Resolved]
  - Gait disturbance [Unknown]
  - Gastrointestinal disorder [Unknown]
  - Dizziness [Unknown]
  - Hypotension [Unknown]
  - Product dose omission in error [Unknown]
